FAERS Safety Report 4906124-4 (Version None)
Quarter: 2006Q1

REPORT INFORMATION
  Report Type: 
  Country: None (occurrence: None)
  Receive Date: 20060209
  Receipt Date: 20060203
  Transmission Date: 20060701
  Serious: Yes (Hospitalization)
  Sender: FDA-Public Use
  Company Number: PHBS2006FR01831

PATIENT
  Age: 73 Year
  Sex: Male

DRUGS (7)
  1. INIPOMP [Suspect]
     Route: 048
     Dates: end: 20051216
  2. KARDEGIC [Suspect]
     Route: 048
  3. NEURONTIN [Suspect]
     Route: 048
  4. ALDALIX [Suspect]
     Dates: end: 20051129
  5. LESCOL XL [Suspect]
     Route: 048
     Dates: end: 20051124
  6. VERAPAMIL [Suspect]
     Dates: end: 20051129
  7. MIXTARD HUMAN 70/30 [Concomitant]
     Route: 058
     Dates: end: 20051124

REACTIONS (7)
  - BIOPSY SKIN ABNORMAL [None]
  - DEHYDRATION [None]
  - DERMATITIS EXFOLIATIVE [None]
  - EXCORIATION [None]
  - FACE OEDEMA [None]
  - PYREXIA [None]
  - SKIN FISSURES [None]
